FAERS Safety Report 14240065 (Version 1)
Quarter: 2017Q4

REPORT INFORMATION
  Report Type: Spontaneous
  Country: US (occurrence: US)
  Receive Date: 20171130
  Receipt Date: 20171130
  Transmission Date: 20180321
  Serious: No
  Sender: FDA-Public Use
  Company Number: US-HERITAGE PHARMACEUTICALS-2017HTG00045

PATIENT
  Age: 61 Year
  Sex: Male
  Weight: 145.13 kg

DRUGS (8)
  1. HYDRALAZINE HYDROCHLORIDE. [Suspect]
     Active Substance: HYDRALAZINE HYDROCHLORIDE
     Indication: BLOOD PRESSURE MEASUREMENT
     Dosage: 25 MG, 3X/DAY
     Route: 048
     Dates: start: 201612, end: 20170216
  2. LOSARTAN (AUROBINDO PHARMA) [Suspect]
     Active Substance: LOSARTAN
     Dosage: UNK
     Dates: end: 201702
  3. PROPRANOLOL [Suspect]
     Active Substance: PROPRANOLOL HYDROCHLORIDE
     Dosage: 120 MG, 2X/DAY
  4. CETIRIZINE [Concomitant]
     Active Substance: CETIRIZINE HYDROCHLORIDE
  5. PROPRANOLOL [Suspect]
     Active Substance: PROPRANOLOL HYDROCHLORIDE
     Dosage: 160 MG, 2X/DAY
  6. VALSARTAN. [Suspect]
     Active Substance: VALSARTAN
  7. BUMETANIDE. [Concomitant]
     Active Substance: BUMETANIDE
  8. MORPHINE EXTENDED-RELEASE [Concomitant]
     Active Substance: MORPHINE SULFATE
     Dosage: 60 MG, 4X/DAY

REACTIONS (12)
  - Paraesthesia [Unknown]
  - Dry mouth [Not Recovered/Not Resolved]
  - Cough [Unknown]
  - Unevaluable event [Unknown]
  - Pain in extremity [Unknown]
  - Headache [Recovering/Resolving]
  - Hypoaesthesia [Unknown]
  - Feeling of body temperature change [Unknown]
  - Drug interaction [Recovered/Resolved]
  - Upper-airway cough syndrome [Unknown]
  - Dry throat [Not Recovered/Not Resolved]
  - Nasal dryness [Not Recovered/Not Resolved]

NARRATIVE: CASE EVENT DATE: 201701
